FAERS Safety Report 4752621-4 (Version None)
Quarter: 2005Q3

REPORT INFORMATION
  Report Type: 
  Country: None (occurrence: None)
  Receive Date: 20050824
  Receipt Date: 20050811
  Transmission Date: 20060218
  Serious: Yes (Hospitalization, Other)
  Sender: FDA-Public Use
  Company Number: 2005043296

PATIENT
  Age: 74 Year
  Sex: Male
  Weight: 86.1834 kg

DRUGS (11)
  1. CARDURA [Suspect]
     Indication: HYPERTENSION
     Dosage: 4 MG (4 MG, 1 IN 1 D), ORAL
     Route: 048
  2. CARDURA [Suspect]
     Indication: PROSTATIC DISORDER
     Dosage: 4 MG (4 MG, 1 IN 1 D), ORAL
     Route: 048
  3. DETROL LA [Suspect]
     Indication: BLADDER SPASM
     Dosage: 4 MG (4 MG, 1 IN 1 D), ORAL
     Route: 048
     Dates: start: 20050225, end: 20050303
  4. LORAZEPAM [Concomitant]
  5. LOTREL [Concomitant]
  6. CIPROFLOXACIN HCL [Concomitant]
  7. BABYPRIN (ACETYLSALICYLIC ACID) [Concomitant]
  8. AMIODARONE HCL [Concomitant]
  9. LASIX [Concomitant]
  10. PREVACID [Concomitant]
  11. COUMADIN [Concomitant]

REACTIONS (1)
  - ANURIA [None]
